FAERS Safety Report 15905942 (Version 2)
Quarter: 2019Q1

REPORT INFORMATION
  Report Type: Spontaneous
  Country: US (occurrence: US)
  Receive Date: 20190204
  Receipt Date: 20190218
  Transmission Date: 20190417
  Serious: No
  Sender: FDA-Public Use
  Company Number: US-HORIZON-VIM-0040-2019

PATIENT
  Age: 62 Year
  Sex: Female

DRUGS (1)
  1. VIMOVO [Suspect]
     Active Substance: ESOMEPRAZOLE MAGNESIUM\NAPROXEN
     Indication: ARTHRALGIA

REACTIONS (4)
  - Off label use [Unknown]
  - Insurance issue [Unknown]
  - Abdominal pain upper [Unknown]
  - Drug ineffective [Unknown]
